FAERS Safety Report 6332205-7 (Version None)
Quarter: 2009Q3

REPORT INFORMATION
  Report Type: 
  Country: None (occurrence: None)
  Receive Date: 20090828
  Receipt Date: 20090817
  Transmission Date: 20100115
  Serious: Yes (Other)
  Sender: FDA-Public Use
  Company Number: JP-PFIZER INC-2009257186

PATIENT

DRUGS (1)
  1. VFEND [Suspect]
     Route: 042

REACTIONS (2)
  - BLOOD AMYLASE INCREASED [None]
  - PANCREATITIS [None]
